FAERS Safety Report 10433104 (Version 1)
Quarter: 2014Q3

REPORT INFORMATION
  Report Type: Spontaneous
  Country: US (occurrence: US)
  Receive Date: 20140905
  Receipt Date: 20140905
  Transmission Date: 20150326
  Serious: No
  Sender: FDA-Public Use
  Company Number: US-009507513-1408USA013776

PATIENT
  Sex: Male

DRUGS (7)
  1. PRINIVIL [Concomitant]
     Active Substance: LISINOPRIL
     Dosage: UNK
     Route: 048
  2. FLOMAX [Concomitant]
     Active Substance: TAMSULOSIN HYDROCHLORIDE
     Dosage: UNK
  3. NEXIUM [Concomitant]
     Active Substance: ESOMEPRAZOLE MAGNESIUM
     Dosage: UNK
  4. AVODART [Concomitant]
     Active Substance: DUTASTERIDE
     Dosage: UNK
  5. AMLODIPINE BESYLATE (+) ATORVASTATIN CALCIUM [Concomitant]
     Dosage: UNK
  6. NASONEX [Concomitant]
     Active Substance: MOMETASONE FUROATE
     Dosage: UNK
  7. ASMANEX [Suspect]
     Active Substance: MOMETASONE FUROATE
     Dosage: 220 MCG/ 1 PUFF TWICE A DAY
     Route: 055

REACTIONS (3)
  - Underdose [Unknown]
  - Product quality issue [Unknown]
  - Dyspnoea [Unknown]
